FAERS Safety Report 8886006 (Version 2)
Quarter: 2012Q4

REPORT INFORMATION
  Report Type: 
  Country: US (occurrence: US)
  Receive Date: 20121105
  Receipt Date: 20121210
  Transmission Date: 20130627
  Serious: No
  Sender: FDA-Public Use
  Company Number: US-PFIZER INC-2012274471

PATIENT
  Age: 66 Year
  Sex: Female
  Weight: 60.32 kg

DRUGS (3)
  1. EFFEXOR XR [Suspect]
     Indication: MENOPAUSAL SYMPTOMS
     Dosage: 35 mg, daily
     Dates: start: 2008
  2. VENLAFAXINE HYDROCHLORIDE [Suspect]
     Indication: MENOPAUSAL SYMPTOMS
     Dosage: 35 mg, daily
     Dates: start: 2009
  3. LETROZOLE [Concomitant]
     Indication: BREAST CANCER FEMALE
     Dosage: 2.5 mg, daily

REACTIONS (8)
  - Enzyme inhibition [Unknown]
  - Nausea [Recovered/Resolved]
  - Withdrawal syndrome [Recovered/Resolved]
  - Feeling abnormal [Unknown]
  - Hot flush [Unknown]
  - Hyperhidrosis [Unknown]
  - Abnormal behaviour [Unknown]
  - Off label use [Unknown]
